FAERS Safety Report 17344474 (Version 1)
Quarter: 2020Q1

REPORT INFORMATION
  Report Type: Spontaneous
  Country: US (occurrence: US)
  Receive Date: 20200129
  Receipt Date: 20200129
  Transmission Date: 20200409
  Serious: No
  Sender: FDA-Public Use
  Company Number: US-ALLERGAN-1940806US

PATIENT

DRUGS (4)
  1. BROMELAIN [Concomitant]
     Active Substance: BROMELAINS
  2. FILLER [Suspect]
     Active Substance: UNSPECIFIED INGREDIENT
     Indication: FACE LIFT
  3. JUVEDERM [Suspect]
     Active Substance: HYALURONIC ACID
     Indication: PRODUCT USED FOR UNKNOWN INDICATION
     Dosage: UNK UNK, SINGLE
     Route: 042
     Dates: start: 201902, end: 201902
  4. BOTOX [Suspect]
     Active Substance: ONABOTULINUMTOXINA
     Indication: SKIN WRINKLING
     Dosage: UNK, SINGLE
     Dates: start: 201902, end: 201902

REACTIONS (4)
  - Eye haematoma [Recovered/Resolved with Sequelae]
  - Eye disorder [Unknown]
  - Deformity [Unknown]
  - Wrong technique in product usage process [Unknown]
